FAERS Safety Report 13452647 (Version 17)
Quarter: 2019Q4

REPORT INFORMATION
  Report Type: Report from Study
  Country: None (occurrence: NL)
  Receive Date: 20170418
  Receipt Date: 20191216
  Transmission Date: 20200122
  Serious: Yes (Disabling, Other)
  Sender: FDA-Public Use
  Company Number: NL-ABBVIE-17K-114-1944010-00

PATIENT
  Age: 73 Year
  Sex: Male
  Weight: 43 kg

DRUGS (14)
  1. DUODOPA [Suspect]
     Active Substance: CARBIDOPA\LEVODOPA
     Dosage: MD: 4.5
     Route: 050
  2. DUODOPA [Suspect]
     Active Substance: CARBIDOPA\LEVODOPA
     Dosage: MD: 3.8
     Route: 050
  3. DUODOPA [Suspect]
     Active Substance: CARBIDOPA\LEVODOPA
     Dosage: MD: 3.5
     Route: 050
  4. DUODOPA [Suspect]
     Active Substance: CARBIDOPA\LEVODOPA
     Indication: PARKINSON^S DISEASE
     Dosage: MD: 4.8, CD:6.9, ED: 3.0, ND: 3.3, EXTRA DOSE AT NIGHT: 0.8
     Route: 050
     Dates: start: 20161011
  5. AMANTADINE. [Concomitant]
     Active Substance: AMANTADINE HYDROCHLORIDE
     Indication: PRODUCT USED FOR UNKNOWN INDICATION
  6. PANTOZOL [Concomitant]
     Active Substance: PANTOPRAZOLE SODIUM
     Indication: PRODUCT USED FOR UNKNOWN INDICATION
  7. DUODOPA [Suspect]
     Active Substance: CARBIDOPA\LEVODOPA
     Dosage: MD: 4.3, CD: 7.0, ED: 3.0
     Route: 050
  8. DUODOPA [Suspect]
     Active Substance: CARBIDOPA\LEVODOPA
     Dosage: CD DECREASED FROM 7.0 ML/HR TO 6.8 ML/HR
     Route: 050
  9. MOVICOLON [Concomitant]
     Active Substance: POLYETHYLENE GLYCOL 3350\POTASSIUM CHLORIDE\SODIUM BICARBONATE\SODIUM CHLORIDE
     Indication: PRODUCT USED FOR UNKNOWN INDICATION
  10. NIZORAL [Concomitant]
     Active Substance: KETOCONAZOLE
     Indication: PRODUCT USED FOR UNKNOWN INDICATION
  11. ZINC OINTMENT [Concomitant]
     Indication: PRODUCT USED FOR UNKNOWN INDICATION
  12. DUODOPA [Suspect]
     Active Substance: CARBIDOPA\LEVODOPA
     Dosage: MD - 4.8 CDD - 7.0 EDD - 3.0, NIGHT DOSE:3.7  EXTRA NIGHT DOSE: 0.8 CND - 3.7 END - 0.8
     Route: 050
  13. SYMMETREL [Concomitant]
     Active Substance: AMANTADINE HYDROCHLORIDE
     Indication: PRODUCT USED FOR UNKNOWN INDICATION
  14. DUODOPA [Suspect]
     Active Substance: CARBIDOPA\LEVODOPA
     Dosage: MD 3.5 CD 6.8 ED 3.0 NIGHTPUMP CD 3.7 ED 0.8
     Route: 050

REACTIONS (61)
  - Balance disorder [Not Recovered/Not Resolved]
  - Spinal pain [Recovered/Resolved]
  - Chest pain [Unknown]
  - Stoma site discharge [Recovering/Resolving]
  - Impaired gastric emptying [Not Recovered/Not Resolved]
  - Spinal compression fracture [Unknown]
  - Drug dependence [Recovered/Resolved]
  - Loss of control of legs [Not Recovered/Not Resolved]
  - Muscle rigidity [Not Recovered/Not Resolved]
  - Head discomfort [Not Recovered/Not Resolved]
  - Gait disturbance [Not Recovered/Not Resolved]
  - Dystonia [Not Recovered/Not Resolved]
  - Parkinson^s disease [Not Recovered/Not Resolved]
  - Therapeutic response shortened [Not Recovered/Not Resolved]
  - Dyskinesia [Recovering/Resolving]
  - Stoma site pain [Not Recovered/Not Resolved]
  - Device loosening [Unknown]
  - Dysphagia [Not Recovered/Not Resolved]
  - Myalgia [Not Recovered/Not Resolved]
  - Medical device site dryness [Unknown]
  - Hemiplegia [Not Recovered/Not Resolved]
  - Stoma site discharge [Recovered/Resolved]
  - Hyperkinesia [Not Recovered/Not Resolved]
  - Medical device site discolouration [Recovering/Resolving]
  - Restlessness [Not Recovered/Not Resolved]
  - Musculoskeletal disorder [Not Recovered/Not Resolved]
  - Muscle spasms [Not Recovered/Not Resolved]
  - Confusional state [Not Recovered/Not Resolved]
  - Stoma complication [Not Recovered/Not Resolved]
  - Speech disorder [Recovered/Resolved]
  - Weight decreased [Recovered/Resolved]
  - Weight decreased [Recovered/Resolved]
  - Fungal infection [Not Recovered/Not Resolved]
  - Decreased appetite [Not Recovered/Not Resolved]
  - Dyskinesia [Not Recovered/Not Resolved]
  - Hyperkinesia [Not Recovered/Not Resolved]
  - Regurgitation [Not Recovered/Not Resolved]
  - Adverse event [Unknown]
  - Night sweats [Not Recovered/Not Resolved]
  - Frequent bowel movements [Recovered/Resolved]
  - Device deployment issue [Unknown]
  - Drug ineffective [Not Recovered/Not Resolved]
  - Stoma site erythema [Recovering/Resolving]
  - Device issue [Unknown]
  - Fibroma [Not Recovered/Not Resolved]
  - Musculoskeletal stiffness [Not Recovered/Not Resolved]
  - Medical device site discolouration [Not Recovered/Not Resolved]
  - Intertrigo [Not Recovered/Not Resolved]
  - Feeling abnormal [Recovered/Resolved]
  - Stoma site reaction [Recovering/Resolving]
  - Weight increased [Not Recovered/Not Resolved]
  - Dopamine dysregulation syndrome [Not Recovered/Not Resolved]
  - Muscle contracture [Not Recovered/Not Resolved]
  - Restless legs syndrome [Not Recovered/Not Resolved]
  - Loss of personal independence in daily activities [Not Recovered/Not Resolved]
  - Poor quality sleep [Recovered/Resolved]
  - Fatigue [Not Recovered/Not Resolved]
  - Malaise [Not Recovered/Not Resolved]
  - Initial insomnia [Recovered/Resolved]
  - Freezing phenomenon [Not Recovered/Not Resolved]
  - On and off phenomenon [Not Recovered/Not Resolved]

NARRATIVE: CASE EVENT DATE: 201704
